FAERS Safety Report 24601213 (Version 2)
Quarter: 2025Q1

REPORT INFORMATION
  Report Type: Report from Study
  Country: CA (occurrence: CA)
  Receive Date: 20241111
  Receipt Date: 20250116
  Transmission Date: 20250409
  Serious: Yes (Other)
  Sender: Alvotech
  Company Number: CA-JAMP PHARMA CORPORATION-2024-JAM-CA-01455

PATIENT
  Age: 46 Year
  Sex: Female

DRUGS (1)
  1. SIMLANDI [Suspect]
     Active Substance: ADALIMUMAB-RYVK
     Indication: Hidradenitis
     Dosage: 40 MILLIGRAM, EVERY WEEK
     Route: 058
     Dates: start: 20240503

REACTIONS (3)
  - Brain injury [Unknown]
  - Amnesia [Not Recovered/Not Resolved]
  - Sinus operation [Unknown]
